APPROVED DRUG PRODUCT: CARBOPROST TROMETHAMINE
Active Ingredient: CARBOPROST TROMETHAMINE
Strength: EQ 0.25MG BASE/ML
Dosage Form/Route: INJECTABLE;INJECTION
Application: A217198 | Product #001 | TE Code: AP
Applicant: ALEMBIC PHARMACEUTICALS LTD
Approved: Jun 15, 2023 | RLD: No | RS: No | Type: RX